FAERS Safety Report 8237774-8 (Version None)
Quarter: 2012Q1

REPORT INFORMATION
  Report Type: 
  Country: None (occurrence: None)
  Receive Date: 20120327
  Receipt Date: 20120313
  Transmission Date: 20120608
  Serious: Yes (Hospitalization)
  Sender: FDA-Public Use
  Company Number: DE-BAXTER-2012BAX000093

PATIENT
  Age: 39 Year
  Sex: Male

DRUGS (5)
  1. NUTRINEAL PD4 MIT 1,1% AMINOSAUREN [Suspect]
     Route: 033
     Dates: start: 20080418
  2. VITAMIN D [Concomitant]
     Route: 065
  3. PHYSIONEAL 40 GLUCOSE 1,36 % W/V 13,6 MG/ML PERITONEALDIALYSELOSUNG [Suspect]
     Route: 033
     Dates: start: 20080418
  4. ANGIOTENSIN CONVERTING ENZYME INHIBITORS [Concomitant]
     Route: 048
  5. EXTRANEAL [Suspect]
     Route: 033
     Dates: start: 20080418

REACTIONS (1)
  - EPILEPSY [None]
